FAERS Safety Report 6372060-2 (Version None)
Quarter: 2009Q3

REPORT INFORMATION
  Report Type: 
  Country: None (occurrence: None)
  Receive Date: 20090917
  Receipt Date: 20090908
  Transmission Date: 20100115
  Serious: Yes (Death, Hospitalization)
  Sender: FDA-Public Use
  Company Number: 2009PL000272

PATIENT
  Age: 48 Year
  Sex: Female

DRUGS (2)
  1. AZATHIOPRINE [Suspect]
     Indication: MULTIPLE SCLEROSIS
     Dosage: 150 MG,
  2. MITOXANTRONE (MITOXANTRONE) [Suspect]
     Indication: MULTIPLE SCLEROSIS
     Dosage: 120 MG;
     Dates: start: 19960701, end: 19970401

REACTIONS (5)
  - ACUTE GRAFT VERSUS HOST DISEASE IN INTESTINE [None]
  - ACUTE MYELOID LEUKAEMIA [None]
  - DRUG INTERACTION [None]
  - MULTIPLE SCLEROSIS RELAPSE [None]
  - PANCYTOPENIA [None]
